FAERS Safety Report 16615685 (Version 1)
Quarter: 2019Q3

REPORT INFORMATION
  Report Type: Spontaneous
  Country: US (occurrence: US)
  Receive Date: 20190723
  Receipt Date: 20190723
  Transmission Date: 20191004
  Serious: No
  Sender: FDA-Public Use
  Company Number: US-ABBVIE-19P-163-2862535-00

PATIENT
  Sex: Female

DRUGS (1)
  1. ORILISSA [Suspect]
     Active Substance: ELAGOLIX SODIUM
     Indication: ENDOMETRIOSIS
     Route: 048
     Dates: start: 2019

REACTIONS (7)
  - Nausea [Recovered/Resolved]
  - Malaise [Unknown]
  - Pain [Unknown]
  - Hot flush [Recovered/Resolved]
  - Migraine [Unknown]
  - Weight decreased [Unknown]
  - Abdominal distension [Unknown]
